FAERS Safety Report 9059157 (Version 1)
Quarter: 2013Q1

REPORT INFORMATION
  Report Type: Spontaneous
  Country: US (occurrence: US)
  Receive Date: 20130211
  Receipt Date: 20130211
  Transmission Date: 20140127
  Serious: No
  Sender: FDA-Public Use
  Company Number: US-BRISTOL-MYERS SQUIBB COMPANY-17069568

PATIENT
  Age: 30 Year
  Sex: Female

DRUGS (2)
  1. METFORMIN HCL [Suspect]
     Dosage: 1 DF: 500MG IN MRNG,1000MG IN EVNG
     Dates: start: 20121001
  2. LANTUS [Suspect]
     Dosage: 1 DF: 20 UNITS,PARENTERAL INJ,100IU/ML
     Route: 058
     Dates: start: 20121001

REACTIONS (1)
  - Hyperglycaemia [Unknown]
